FAERS Safety Report 7692852-7 (Version None)
Quarter: 2011Q2

REPORT INFORMATION
  Report Type: 
  Country: None (occurrence: None)
  Receive Date: 20110416
  Receipt Date: 20110801
  Transmission Date: 20111010
  Serious: Yes (Death, Hospitalization)
  Sender: FDA-Public Use
  Company Number: 2009BI021830

PATIENT
  Age: 57 Year
  Sex: Female

DRUGS (11)
  1. PREDNISOLONE [Concomitant]
  2. LOXONIN [Concomitant]
  3. DOXORUBICIN HCL [Concomitant]
  4. ZEVALIN [Suspect]
     Indication: FOLLICLE CENTRE LYMPHOMA, FOLLICULAR GRADE I, II, III STAGE I
     Dosage: 703 MBQ;1X;IV
     Route: 042
     Dates: start: 20090127
  5. CYCLOPHOSPHAMIDE [Concomitant]
  6. VINCRISTINE [Concomitant]
  7. ZEVALIN [Suspect]
     Indication: FOLLICLE CENTRE LYMPHOMA, FOLLICULAR GRADE I, II, III STAGE I
     Dosage: 130 MBQ;1X;IV
     Route: 042
     Dates: start: 20090120
  8. MELPHALAN HYDROCHLORIDE [Concomitant]
  9. POLARAMINE [Concomitant]
  10. FLUDARABINE PHOSPHATE [Concomitant]
  11. RITUXIMAB [Concomitant]

REACTIONS (5)
  - ANAEMIA [None]
  - FOLLICLE CENTRE LYMPHOMA, FOLLICULAR GRADE I, II, III STAGE IV [None]
  - FUNGAL INFECTION [None]
  - BONE MARROW FAILURE [None]
  - DISEASE PROGRESSION [None]
